FAERS Safety Report 5913547-3 (Version None)
Quarter: 2008Q4

REPORT INFORMATION
  Report Type: 
  Country: None (occurrence: None)
  Receive Date: 20081006
  Receipt Date: 20080929
  Transmission Date: 20090506
  Serious: Yes (Other)
  Sender: FDA-Public Use
  Company Number: 2008SP019940

PATIENT
  Age: 51 Year
  Sex: Female
  Weight: 99.7913 kg

DRUGS (2)
  1. PEG-INTRON [Suspect]
     Indication: HEPATITIS C
     Dosage: ; SC
     Route: 058
     Dates: start: 20080809
  2. RIBAVIRIN [Suspect]
     Indication: HEPATITIS C
     Dosage: ; PO
     Route: 048
     Dates: start: 20080809

REACTIONS (23)
  - ANAEMIA [None]
  - ARTHRALGIA [None]
  - ASTHENIA [None]
  - BLOOD PRESSURE INCREASED [None]
  - BLOOD TEST ABNORMAL [None]
  - CHILLS [None]
  - CONDITION AGGRAVATED [None]
  - DEHYDRATION [None]
  - DEPRESSION [None]
  - EATING DISORDER [None]
  - FATIGUE [None]
  - GAIT DISTURBANCE [None]
  - ILL-DEFINED DISORDER [None]
  - INSOMNIA [None]
  - MALAISE [None]
  - NAUSEA [None]
  - OSTEOPOROSIS [None]
  - PAIN [None]
  - PLATELET COUNT DECREASED [None]
  - PYREXIA [None]
  - VERTIGO [None]
  - VOMITING [None]
  - WEIGHT DECREASED [None]
